FAERS Safety Report 9351911 (Version 3)
Quarter: 2013Q4

REPORT INFORMATION
  Report Type: Spontaneous
  Country: JP (occurrence: JP)
  Receive Date: 20130617
  Receipt Date: 20131022
  Transmission Date: 20140711
  Serious: Yes (Hospitalization)
  Sender: FDA-Public Use
  Company Number: JP-GLAXOSMITHKLINE-B0886019A

PATIENT
  Age: 43 Year
  Sex: Female

DRUGS (5)
  1. PAXIL [Suspect]
     Indication: ANXIETY DISORDER
     Dosage: 5MG PER DAY
     Route: 048
     Dates: start: 20120918, end: 20130329
  2. MEILAX [Concomitant]
     Indication: ANXIETY
     Dosage: 1MG TWICE PER DAY
     Route: 048
  3. AZULENE SODIUM SULPHONATE [Concomitant]
     Indication: GASTRIC DISORDER
     Dosage: 1.2MG TWICE PER DAY
     Route: 048
  4. GASPORT-D [Concomitant]
     Indication: GASTRIC DISORDER
     Dosage: 20MG TWICE PER DAY
     Route: 048
  5. GOODMIN [Concomitant]
     Indication: INSOMNIA
     Dosage: .25MG PER DAY
     Route: 048

REACTIONS (7)
  - Hyperthyroidism [Recovered/Resolved with Sequelae]
  - Autoimmune thyroiditis [Not Recovered/Not Resolved]
  - Hypothyroidism [Unknown]
  - Weight decreased [Unknown]
  - Palpitations [Unknown]
  - Malaise [Unknown]
  - Thyroiditis subacute [Recovered/Resolved with Sequelae]
